FAERS Safety Report 7360985-0 (Version None)
Quarter: 2011Q1

REPORT INFORMATION
  Report Type: 
  Country: None (occurrence: None)
  Receive Date: 20110318
  Receipt Date: 20101222
  Transmission Date: 20110831
  Serious: No
  Sender: FDA-Public Use
  Company Number: US-BAYER-2011-011434

PATIENT
  Sex: Male
  Weight: 116 kg

DRUGS (4)
  1. CRESTOR [Concomitant]
  2. ALEVE (CAPLET) [Suspect]
     Indication: NEURALGIA
     Dosage: BOTTLE COUNT 130CT
     Route: 048
  3. ASPIRIN [Concomitant]
     Dosage: 81 MG, UNK
  4. DIOVAN [Concomitant]

REACTIONS (1)
  - NEURALGIA [None]
